FAERS Safety Report 7125968-4 (Version None)
Quarter: 2010Q4

REPORT INFORMATION
  Report Type: 
  Country: None (occurrence: None)
  Receive Date: 20101129
  Receipt Date: 20101117
  Transmission Date: 20110411
  Serious: Yes (Hospitalization, Other)
  Sender: FDA-Public Use
  Company Number: US-JNJFOC-20101006617

PATIENT
  Sex: Female
  Weight: 52.16 kg

DRUGS (5)
  1. DURAGESIC-100 [Suspect]
     Indication: INTERVERTEBRAL DISC DEGENERATION
     Route: 062
  2. DURAGESIC-100 [Suspect]
     Dosage: NDC# 50458-094-05
     Route: 062
  3. LEVOTHYROXINE SODIUM [Suspect]
     Indication: GOITRE
     Route: 065
  4. DYE (CONTRAST MEDIA) [Suspect]
     Indication: ILL-DEFINED DISORDER
     Route: 065
  5. UNKNOWN MEDICATION [Suspect]
     Indication: ILL-DEFINED DISORDER
     Route: 065

REACTIONS (7)
  - ADVERSE DRUG REACTION [None]
  - ANXIETY [None]
  - DRUG HYPERSENSITIVITY [None]
  - FEELING ABNORMAL [None]
  - GOITRE [None]
  - HYPERTENSION [None]
  - INSOMNIA [None]
